FAERS Safety Report 6613107-5 (Version None)
Quarter: 2010Q1

REPORT INFORMATION
  Report Type: 
  Country: None (occurrence: None)
  Receive Date: 20100223
  Receipt Date: 20100211
  Transmission Date: 20100710
  Serious: Yes (Death)
  Sender: FDA-Public Use
  Company Number: JHP201000062

PATIENT
  Age: 12 Year
  Sex: Female

DRUGS (5)
  1. COLY-MYCIN M [Suspect]
     Indication: BACTERIAL INFECTION
     Dosage: 40000 IU/KG, DAILY (IN 3 DIVIDED DOSES), INTRAVENOUS
     Route: 042
  2. COLY-MYCIN M [Suspect]
     Indication: PATHOGEN RESISTANCE
     Dosage: 40000 IU/KG, DAILY (IN 3 DIVIDED DOSES), INTRAVENOUS
     Route: 042
  3. GENTAMICIN [Concomitant]
  4. METRONIDAZOLE (METRONIDAZOLE SODIUM) [Concomitant]
  5. AMPHOTERICIN B LIPID COMPLEX (AMPHOTERICIN B, LIPOSOME) [Concomitant]

REACTIONS (2)
  - MULTI-ORGAN FAILURE [None]
  - SEPSIS [None]
